FAERS Safety Report 7704763-9 (Version None)
Quarter: 2011Q3

REPORT INFORMATION
  Report Type: 
  Country: None (occurrence: None)
  Receive Date: 20110823
  Receipt Date: 20110801
  Transmission Date: 20111222
  Serious: Yes (Hospitalization)
  Sender: FDA-Public Use
  Company Number: FR-BAYER-2011-068032

PATIENT
  Age: 64 Year
  Sex: Male

DRUGS (7)
  1. PIPERACILLIN AND TAZOBACTAM [Suspect]
     Indication: INFECTION
     Dosage: UNK
     Dates: start: 20110531, end: 20110601
  2. CIPROFLOXACIN [Suspect]
     Indication: ACUTE RESPIRATORY DISTRESS SYNDROME
     Dosage: UNK
     Dates: start: 20110510, end: 20110514
  3. AMIKACIN [Suspect]
     Indication: INFECTION
     Dosage: UNK
     Dates: start: 20110531, end: 20110602
  4. CASPOFUNGIN ACETATE [Suspect]
     Indication: ACUTE RESPIRATORY DISTRESS SYNDROME
     Dosage: UNK
     Dates: start: 20110510
  5. PIPERACILLIN AND TAZOBACTAM [Suspect]
     Indication: ACUTE RESPIRATORY DISTRESS SYNDROME
     Dosage: UNK
     Dates: start: 20110510, end: 20110524
  6. PIPERACILLIN [Suspect]
     Indication: INFECTION
     Dosage: UNK
     Dates: start: 20110601, end: 20110608
  7. FLUCONAZOLE [Suspect]
     Indication: INFECTION
     Dosage: UNK
     Dates: start: 20110601, end: 20110615

REACTIONS (1)
  - TOXIC SKIN ERUPTION [None]
